FAERS Safety Report 15446761 (Version 1)
Quarter: 2018Q3

REPORT INFORMATION
  Report Type: Report from Study
  Country: US (occurrence: US)
  Receive Date: 20180928
  Receipt Date: 20180928
  Transmission Date: 20181010
  Serious: Yes (Hospitalization, Other)
  Sender: FDA-Public Use
  Company Number: US-SA-2018SA238016

PATIENT
  Age: 45 Year
  Sex: Female
  Weight: 121 kg

DRUGS (2)
  1. OXYCODONE [Suspect]
     Active Substance: OXYCODONE
     Dosage: UNK UNK, UNK
  2. INSULIN GLARGINE [Suspect]
     Active Substance: INSULIN GLARGINE
     Dosage: 130 U, QD
     Dates: start: 20180515, end: 20180822

REACTIONS (13)
  - Hyperkalaemia [Not Recovered/Not Resolved]
  - Hyponatraemia [Not Recovered/Not Resolved]
  - Blood lactic acid increased [Not Recovered/Not Resolved]
  - Respiratory rate decreased [Not Recovered/Not Resolved]
  - Acidosis [Not Recovered/Not Resolved]
  - Blood creatinine increased [Not Recovered/Not Resolved]
  - Hypotension [Not Recovered/Not Resolved]
  - Drug abuse [Unknown]
  - Hyperphosphataemia [Not Recovered/Not Resolved]
  - Mental disorder [Not Recovered/Not Resolved]
  - Fall [Unknown]
  - Blood urea increased [Not Recovered/Not Resolved]
  - Confusional state [Not Recovered/Not Resolved]

NARRATIVE: CASE EVENT DATE: 20180822
